FAERS Safety Report 5499186-X (Version None)
Quarter: 2007Q4

REPORT INFORMATION
  Report Type: 
  Country: None (occurrence: None)
  Receive Date: 20071026
  Receipt Date: 20071015
  Transmission Date: 20080405
  Serious: Yes (Hospitalization, Other)
  Sender: FDA-Public Use
  Company Number: GB-ASTRAZENECA-2007GB01380

PATIENT
  Age: 7904 Day
  Sex: Female

DRUGS (2)
  1. SEROQUEL [Suspect]
     Indication: PSYCHOTIC DISORDER
     Route: 048
     Dates: start: 20070511, end: 20070606
  2. FLUOXETINE [Concomitant]
     Indication: DEPRESSION
     Route: 048
     Dates: start: 20021115

REACTIONS (5)
  - EYE DISORDER [None]
  - MUSCULOSKELETAL STIFFNESS [None]
  - TARDIVE DYSKINESIA [None]
  - TREMOR [None]
  - VISION BLURRED [None]
